FAERS Safety Report 7595116-5 (Version None)
Quarter: 2011Q2

REPORT INFORMATION
  Report Type: 
  Country: None (occurrence: None)
  Receive Date: 20110620
  Receipt Date: 20110322
  Transmission Date: 20111010
  Serious: Yes (Hospitalization)
  Sender: FDA-Public Use
  Company Number: UTC-005860

PATIENT
  Age: 52 Year
  Sex: Male
  Weight: 81.8 kg

DRUGS (3)
  1. DIRUETICS (DIRUETICS) [Concomitant]
  2. TYVASO [Suspect]
     Indication: PULMONARY ARTERIAL HYPERTENSION
     Dosage: 72 MCG (18 MCG, 4 IN 1 D), INHALATION
     Route: 055
     Dates: start: 20100210
  3. REVATIO [Concomitant]

REACTIONS (1)
  - UMBILICAL HERNIA [None]
